FAERS Safety Report 6940266-7 (Version None)
Quarter: 2010Q3

REPORT INFORMATION
  Report Type: 
  Country: None (occurrence: None)
  Receive Date: 20100825
  Receipt Date: 20100811
  Transmission Date: 20110219
  Serious: Yes (Other)
  Sender: FDA-Public Use
  Company Number: PHHY2010BE51345

PATIENT
  Age: 32 Year
  Sex: Female

DRUGS (6)
  1. MYFORTIC [Suspect]
     Indication: LUNG TRANSPLANT
     Dosage: UNK
     Dates: start: 20100720, end: 20100803
  2. MYFORTIC [Suspect]
     Indication: PULMONARY FUNCTION TEST DECREASED
  3. PROGRAFT [Concomitant]
     Indication: PULMONARY FUNCTION TEST DECREASED
     Dosage: UNK
     Route: 065
     Dates: start: 20100720
  4. PROGRAFT [Concomitant]
     Indication: LUNG TRANSPLANT
  5. CORTICOSTEROIDS [Concomitant]
     Indication: PULMONARY FUNCTION TEST DECREASED
     Dosage: UNK
     Dates: start: 20100720
  6. PANCREATIC ENZYMES [Concomitant]
     Dosage: UNK
     Route: 065

REACTIONS (6)
  - DECREASED APPETITE [None]
  - FATIGUE [None]
  - FORCED EXPIRATORY VOLUME ABNORMAL [None]
  - PAIN [None]
  - TREMOR [None]
  - WHEEZING [None]
